FAERS Safety Report 11801980 (Version 1)
Quarter: 2015Q4

REPORT INFORMATION
  Report Type: Spontaneous
  Country: JP (occurrence: JP)
  Receive Date: 20151204
  Receipt Date: 20151204
  Transmission Date: 20160305
  Serious: Yes (Death, Other)
  Sender: FDA-Public Use
  Company Number: JP-MYLANLABS-2015M1041383

PATIENT

DRUGS (2)
  1. PREDNISOLONE TABLETS 1^HOEI^ [Suspect]
     Active Substance: PREDNISOLONE
     Indication: BEHCET^S SYNDROME
     Dosage: 10 MG, QD
     Route: 048
  2. PREDNISOLONE TABLETS 1^HOEI^ [Suspect]
     Active Substance: PREDNISOLONE
     Indication: DIABETES MELLITUS

REACTIONS (5)
  - Renal impairment [Fatal]
  - Disseminated cryptococcosis [Unknown]
  - General physical health deterioration [Fatal]
  - Cellulitis [Unknown]
  - Enterococcal sepsis [Fatal]
